FAERS Safety Report 5356743-9 (Version None)
Quarter: 2007Q2

REPORT INFORMATION
  Report Type: 
  Country: None (occurrence: None)
  Receive Date: 20070614
  Receipt Date: 20060515
  Transmission Date: 20071010
  Serious: No
  Sender: FDA-Public Use
  Company Number: US-ASTRAZENECA-2006UW09518

PATIENT
  Sex: Male

DRUGS (1)
  1. ATACAND [Suspect]
     Dates: start: 20060301

REACTIONS (1)
  - URINARY TRACT INFECTION [None]
